FAERS Safety Report 7466716-8 (Version None)
Quarter: 2011Q2

REPORT INFORMATION
  Report Type: 
  Country: None (occurrence: None)
  Receive Date: 20110509
  Receipt Date: 20110426
  Transmission Date: 20111010
  Serious: Yes (Hospitalization)
  Sender: FDA-Public Use
  Company Number: CN-CELGENEUS-035-C5013-11041050

PATIENT
  Sex: Male
  Weight: 60 kg

DRUGS (7)
  1. DEXAMETHASONE [Suspect]
     Indication: MULTIPLE MYELOMA
     Dosage: 40 MILLIGRAM
     Route: 065
     Dates: start: 20101230
  2. ASPIRIN [Concomitant]
     Indication: THROMBOSIS PROPHYLAXIS
     Dosage: 100 MILLIGRAM
     Route: 048
     Dates: start: 20101230, end: 20110407
  3. MECOBALAMIN [Concomitant]
     Dosage: 1500 MICROGRAM
     Route: 048
     Dates: start: 20110324, end: 20110407
  4. OMEPRAZOLE [Concomitant]
     Indication: GASTRITIS PROPHYLAXIS
     Dosage: 20 MILLIGRAM
     Route: 048
     Dates: start: 20101230, end: 20110407
  5. LENALIDOMIDE [Suspect]
     Dosage: 25 MILLIGRAM
     Route: 048
     Dates: start: 20110324, end: 20110407
  6. DEXAMETHASONE [Suspect]
     Dosage: 40 MILLIGRAM
     Route: 065
     Dates: start: 20110324, end: 20110407
  7. LENALIDOMIDE [Suspect]
     Indication: MULTIPLE MYELOMA
     Dosage: 25 MILLIGRAM
     Route: 048
     Dates: start: 20101230

REACTIONS (1)
  - ARRHYTHMIA [None]
